FAERS Safety Report 4419674-4 (Version None)
Quarter: 2004Q3

REPORT INFORMATION
  Report Type: 
  Country: None (occurrence: None)
  Receive Date: 20040804
  Receipt Date: 20040721
  Transmission Date: 20050211
  Serious: Yes (Hospitalization)
  Sender: FDA-Public Use
  Company Number: 2004-03260

PATIENT
  Age: 16 Year
  Sex: Female

DRUGS (3)
  1. PROMETHAZINE [Suspect]
     Dosage: SINGLE
  2. PROMETHAZINE W/ CODEINE [Suspect]
     Dosage: ORAL
     Route: 048
  3. AZITHROMYCIN [Concomitant]

REACTIONS (5)
  - ANXIETY [None]
  - CONFUSIONAL STATE [None]
  - HALLUCINATIONS, MIXED [None]
  - PARANOIA [None]
  - PSYCHOTIC DISORDER [None]
